FAERS Safety Report 20907931 (Version 3)
Quarter: 2022Q4

REPORT INFORMATION
  Report Type: Report from Study
  Country: ES (occurrence: ES)
  Receive Date: 20220602
  Receipt Date: 20221008
  Transmission Date: 20230113
  Serious: Yes (Hospitalization, Other)
  Sender: FDA-Public Use
  Company Number: ES-CC-90011-ST-002-3511002-20201223-0001SG

PATIENT
  Age: 67 Year
  Sex: Male
  Weight: 61 kg

DRUGS (14)
  1. NIVOLUMAB [Suspect]
     Active Substance: NIVOLUMAB
     Indication: Squamous cell carcinoma of lung
     Dosage: 480 MILLIGRAM, Q4WK
     Route: 041
     Dates: start: 20201026, end: 20201026
  2. LORMETAZEPAM [Concomitant]
     Active Substance: LORMETAZEPAM
     Indication: Insomnia
     Route: 048
     Dates: start: 20180803
  3. MST [Concomitant]
     Indication: Back pain
     Dosage: 20 MG X 2 X 1 DAYS
     Route: 048
     Dates: start: 2020
  4. MST [Concomitant]
     Indication: Arthralgia
     Dosage: 30 MG X 1 X 12 HOURS
     Route: 048
     Dates: start: 20201109
  5. OMEPRAZOLE [Concomitant]
     Active Substance: OMEPRAZOLE
     Indication: Gastritis prophylaxis
     Dosage: 1 DF = 1 TABLET
     Route: 048
     Dates: start: 2017, end: 20210327
  6. ACETAMINOPHEN [Concomitant]
     Active Substance: ACETAMINOPHEN
     Indication: Chest pain
     Dosage: 1 G X 3 X 1 DAYS (ONGOING)
     Route: 048
     Dates: start: 2020
  7. ACETAMINOPHEN [Concomitant]
     Active Substance: ACETAMINOPHEN
     Dosage: 1 GRAM, QD
     Route: 065
     Dates: start: 2020
  8. ENOXAPARIN SODIUM [Concomitant]
     Active Substance: ENOXAPARIN SODIUM
     Indication: Pulmonary embolism
     Dosage: 100 MILLIGRAM, QD
     Route: 058
     Dates: start: 20200925
  9. FERROUS SULFATE [Concomitant]
     Active Substance: FERROUS SULFATE
     Indication: Anaemia
     Dosage: 1 TABLET X 1 X 1 DAYS
     Route: 048
     Dates: start: 20180625
  10. FERROUS SULFATE [Concomitant]
     Active Substance: FERROUS SULFATE
     Dosage: UNK, QD
     Route: 048
     Dates: start: 2017
  11. MORPHINE [Concomitant]
     Active Substance: MORPHINE
     Indication: Arthralgia
     Route: 048
     Dates: start: 20201109
  12. ULTRIBO BREEZHALER [Concomitant]
     Indication: Chronic obstructive pulmonary disease
     Dosage: 1 DF = 1 INHALATION PER DAY
     Route: 055
     Dates: start: 20180803
  13. DOCETAXEL [Concomitant]
     Active Substance: DOCETAXEL
     Indication: Squamous cell carcinoma of lung
     Route: 065
     Dates: start: 20201124, end: 202101
  14. ORAMORPH SR SUSTAINED RELEASE [Concomitant]
     Active Substance: MORPHINE SULFATE
     Indication: Arthralgia
     Dosage: UNK
     Route: 048
     Dates: start: 2020, end: 20201109

REACTIONS (1)
  - Neutropenia [Recovered/Resolved]

NARRATIVE: CASE EVENT DATE: 20201201
